FAERS Safety Report 6540406-8 (Version None)
Quarter: 2010Q1

REPORT INFORMATION
  Report Type: 
  Country: None (occurrence: None)
  Receive Date: 20100113
  Receipt Date: 20100108
  Transmission Date: 20100710
  Serious: No
  Sender: FDA-Public Use
  Company Number: 2010000102

PATIENT

DRUGS (2)
  1. FENTORA [Suspect]
     Dosage: 1600 MCG (400 MCG, 4 IN 1 D), BU
     Route: 002
  2. OPANA [Concomitant]

REACTIONS (1)
  - DRUG PRESCRIBING ERROR [None]
